APPROVED DRUG PRODUCT: DAPTOMYCIN
Active Ingredient: DAPTOMYCIN
Strength: 350MG/VIAL
Dosage Form/Route: POWDER;INTRAVENOUS
Application: N209949 | Product #001
Applicant: HIKMA PHARMACEUTICALS USA INC
Approved: Oct 20, 2017 | RLD: Yes | RS: Yes | Type: RX